FAERS Safety Report 7888725-7 (Version None)
Quarter: 2011Q4

REPORT INFORMATION
  Report Type: 
  Country: None (occurrence: None)
  Receive Date: 20111103
  Receipt Date: 20111031
  Transmission Date: 20120403
  Serious: Yes (Hospitalization, Other)
  Sender: FDA-Public Use
  Company Number: US-PFIZER INC-2011128600

PATIENT
  Sex: Female

DRUGS (3)
  1. CHANTIX [Suspect]
     Indication: SMOKING CESSATION THERAPY
     Dosage: UNK
     Dates: start: 20070601, end: 20070701
  2. ALBUTEROL [Concomitant]
     Indication: CHRONIC OBSTRUCTIVE PULMONARY DISEASE
     Dosage: UNK
     Dates: start: 20070501
  3. ALBUTEROL [Concomitant]
     Indication: ASTHMA

REACTIONS (8)
  - PHYSICAL ASSAULT [None]
  - ANXIETY [None]
  - HALLUCINATION [None]
  - SUICIDE ATTEMPT [None]
  - LIVER INJURY [None]
  - INTENTIONAL OVERDOSE [None]
  - PARANOIA [None]
  - DEPRESSION [None]
